FAERS Safety Report 8889945 (Version 1)
Quarter: 2012Q4

REPORT INFORMATION
  Report Type: 
  Country: CA (occurrence: CA)
  Receive Date: 20121107
  Receipt Date: 20121107
  Transmission Date: 20130627
  Serious: Yes (Other)
  Sender: FDA-Public Use
  Company Number: PHHY2012CA100612

PATIENT
  Sex: Male

DRUGS (2)
  1. GILENYA [Suspect]
     Indication: RELAPSING-REMITTING MULTIPLE SCLEROSIS
     Dosage: 0.5 mg, QD
     Route: 048
     Dates: start: 20110922
  2. GILENYA [Suspect]
     Dosage: 0.5 mg, QOD
     Route: 048

REACTIONS (4)
  - Narrow anterior chamber angle [Recovered/Resolved]
  - Fatigue [Unknown]
  - White blood cell count decreased [Unknown]
  - Inappropriate schedule of drug administration [Unknown]
